FAERS Safety Report 25198596 (Version 1)
Quarter: 2025Q2

REPORT INFORMATION
  Report Type: Report from Study
  Country: US (occurrence: US)
  Receive Date: 20250415
  Receipt Date: 20250415
  Transmission Date: 20250717
  Serious: No
  Sender: ACADIA PHARMACEUTICALS
  Company Number: US-ACADIA PHARMACEUTICALS INC.-ACA-2025-PIM-004085

PATIENT
  Age: 92 Year
  Sex: Female

DRUGS (15)
  1. NUPLAZID [Suspect]
     Active Substance: PIMAVANSERIN TARTRATE
     Indication: Parkinson^s disease
     Dosage: 34 MILLIGRAM, QD
     Route: 048
     Dates: start: 20221010, end: 20250305
  2. LATANOPROST [Concomitant]
     Active Substance: LATANOPROST
  3. EXELON [Concomitant]
     Active Substance: RIVASTIGMINE TARTRATE
  4. ASPIRIN [Concomitant]
     Active Substance: ASPIRIN
  5. COZAAR [Concomitant]
     Active Substance: LOSARTAN POTASSIUM
  6. LIPITOR [Concomitant]
     Active Substance: ATORVASTATIN CALCIUM
  7. MELATONIN [Concomitant]
     Active Substance: MELATONIN
  8. METOPROLOL TARTRATE [Concomitant]
     Active Substance: METOPROLOL TARTRATE
  9. NORVASC [Concomitant]
     Active Substance: AMLODIPINE BESYLATE
  10. POTASSIUM CITRATE [Concomitant]
     Active Substance: POTASSIUM CITRATE
  11. RESTASIS [Concomitant]
     Active Substance: CYCLOSPORINE
  12. VITAMIN D3 [Concomitant]
     Active Substance: CHOLECALCIFEROL
  13. ZOLOFT [Concomitant]
     Active Substance: SERTRALINE HYDROCHLORIDE
  14. PROPRANOLOL [Concomitant]
     Active Substance: PROPRANOLOL HYDROCHLORIDE
  15. SEROQUEL [Concomitant]
     Active Substance: QUETIAPINE FUMARATE

REACTIONS (3)
  - Mental disorder [Recovered/Resolved]
  - Depression [Recovered/Resolved]
  - Agitation [Recovered/Resolved]

NARRATIVE: CASE EVENT DATE: 20250305
